FAERS Safety Report 10047659 (Version 1)
Quarter: 2014Q1

REPORT INFORMATION
  Report Type: Spontaneous
  Country: CL (occurrence: CL)
  Receive Date: 20140331
  Receipt Date: 20140331
  Transmission Date: 20141002
  Serious: Yes (Other)
  Sender: FDA-Public Use
  Company Number: CL-PFIZER INC-2014086899

PATIENT
  Age: 82 Year
  Sex: Female

DRUGS (5)
  1. XALATAN [Suspect]
     Indication: GLAUCOMA
     Dosage: 1 DROP, 1X/DAY
     Route: 047
     Dates: start: 2009, end: 201312
  2. ENALAPRIL [Concomitant]
     Dosage: UNK
     Dates: start: 2011
  3. HYDROCHLOROTHIAZIDE [Concomitant]
     Dosage: UNK
     Dates: start: 2011
  4. METFORMIN [Concomitant]
  5. ASPIRIN [Concomitant]
     Dosage: UNK
     Dates: start: 2013

REACTIONS (2)
  - Cataract [Unknown]
  - Glaucoma [Unknown]
